FAERS Safety Report 26022656 (Version 1)
Quarter: 2025Q4

REPORT INFORMATION
  Report Type: Spontaneous
  Country: EU (occurrence: EU)
  Receive Date: 20251110
  Receipt Date: 20251110
  Transmission Date: 20260118
  Serious: Yes (Other)
  Sender: MYLAN
  Company Number: EU-NEOVII_BIOTECH-2022000084

PATIENT
  Age: 60 Year
  Sex: Female

DRUGS (24)
  1. CYCLOSPORINE [Suspect]
     Active Substance: CYCLOSPORINE
     Indication: Product used for unknown indication
     Dosage: UNK
  2. CYCLOSPORINE [Suspect]
     Active Substance: CYCLOSPORINE
     Dosage: UNK
     Route: 065
  3. CYCLOSPORINE [Suspect]
     Active Substance: CYCLOSPORINE
     Dosage: UNK
     Route: 065
  4. CYCLOSPORINE [Suspect]
     Active Substance: CYCLOSPORINE
     Dosage: UNK
  5. FLUDARABINE [Suspect]
     Active Substance: FLUDARABINE PHOSPHATE
     Indication: Acute myeloid leukaemia
     Dosage: UNK
  6. FLUDARABINE [Suspect]
     Active Substance: FLUDARABINE PHOSPHATE
     Indication: Allogenic stem cell transplantation
     Dosage: UNK
     Route: 065
  7. FLUDARABINE [Suspect]
     Active Substance: FLUDARABINE PHOSPHATE
     Indication: Bone marrow conditioning regimen
     Dosage: UNK
     Route: 065
  8. FLUDARABINE [Suspect]
     Active Substance: FLUDARABINE PHOSPHATE
     Dosage: UNK
  9. EVEROLIMUS [Suspect]
     Active Substance: EVEROLIMUS
     Indication: Product used for unknown indication
     Dosage: UNK
  10. EVEROLIMUS [Suspect]
     Active Substance: EVEROLIMUS
     Dosage: UNK
     Route: 065
  11. EVEROLIMUS [Suspect]
     Active Substance: EVEROLIMUS
     Dosage: UNK
     Route: 065
  12. EVEROLIMUS [Suspect]
     Active Substance: EVEROLIMUS
     Dosage: UNK
  13. LAPINE T-LYMPHOCYTE IMMUNE GLOBULIN [Suspect]
     Active Substance: LAPINE T-LYMPHOCYTE IMMUNE GLOBULIN
     Indication: Allogenic stem cell transplantation
     Dosage: UNK
  14. LAPINE T-LYMPHOCYTE IMMUNE GLOBULIN [Suspect]
     Active Substance: LAPINE T-LYMPHOCYTE IMMUNE GLOBULIN
     Dosage: UNK
     Route: 065
  15. LAPINE T-LYMPHOCYTE IMMUNE GLOBULIN [Suspect]
     Active Substance: LAPINE T-LYMPHOCYTE IMMUNE GLOBULIN
     Dosage: UNK
     Route: 065
  16. LAPINE T-LYMPHOCYTE IMMUNE GLOBULIN [Suspect]
     Active Substance: LAPINE T-LYMPHOCYTE IMMUNE GLOBULIN
     Dosage: UNK
  17. MELPHALAN [Suspect]
     Active Substance: MELPHALAN
     Indication: Bone marrow conditioning regimen
     Dosage: UNK
  18. MELPHALAN [Suspect]
     Active Substance: MELPHALAN
     Indication: Allogenic stem cell transplantation
     Dosage: UNK
     Route: 065
  19. MELPHALAN [Suspect]
     Active Substance: MELPHALAN
     Indication: Acute myeloid leukaemia
     Dosage: UNK
     Route: 065
  20. MELPHALAN [Suspect]
     Active Substance: MELPHALAN
     Dosage: UNK
  21. GILTERITINIB [Suspect]
     Active Substance: GILTERITINIB
     Indication: Chemotherapy
     Dosage: ON DAY +64, THE PATIENT STABILIZEDAND GILTERITINIB MAINTENANCE WAS INITIATED.
  22. GILTERITINIB [Suspect]
     Active Substance: GILTERITINIB
     Dosage: ON DAY +64, THE PATIENT STABILIZEDAND GILTERITINIB MAINTENANCE WAS INITIATED.
     Route: 065
  23. GILTERITINIB [Suspect]
     Active Substance: GILTERITINIB
     Dosage: ON DAY +64, THE PATIENT STABILIZEDAND GILTERITINIB MAINTENANCE WAS INITIATED.
     Route: 065
  24. GILTERITINIB [Suspect]
     Active Substance: GILTERITINIB
     Dosage: ON DAY +64, THE PATIENT STABILIZEDAND GILTERITINIB MAINTENANCE WAS INITIATED.

REACTIONS (9)
  - Enterococcal bacteraemia [Unknown]
  - Venoocclusive disease [Recovered/Resolved]
  - Pleural effusion [Unknown]
  - Serositis [Unknown]
  - Epstein-Barr virus infection reactivation [Unknown]
  - Cystitis viral [Unknown]
  - Thrombotic microangiopathy [Unknown]
  - Acute graft versus host disease in intestine [Recovered/Resolved]
  - Renal injury [Not Recovered/Not Resolved]
